FAERS Safety Report 4872708-5 (Version None)
Quarter: 2006Q1

REPORT INFORMATION
  Report Type: 
  Country: None (occurrence: None)
  Receive Date: 20060105
  Receipt Date: 20051228
  Transmission Date: 20060701
  Serious: Yes (Hospitalization)
  Sender: FDA-Public Use
  Company Number: FR-AVENTIS-200514399FR

PATIENT
  Age: 23 Year
  Sex: Male

DRUGS (2)
  1. LOVENOX [Suspect]
     Route: 058
     Dates: start: 20051205, end: 20051217
  2. PLAVIX [Suspect]
     Route: 048
     Dates: start: 20051205, end: 20051215

REACTIONS (4)
  - AORTIC DISSECTION [None]
  - ROAD TRAFFIC ACCIDENT [None]
  - SPINAL FRACTURE [None]
  - THROMBOCYTHAEMIA [None]
